FAERS Safety Report 24737305 (Version 1)
Quarter: 2024Q4

REPORT INFORMATION
  Report Type: Report from Study
  Country: US (occurrence: US)
  Receive Date: 20241216
  Receipt Date: 20241216
  Transmission Date: 20250115
  Serious: Yes (Other)
  Sender: SANOFI AVENTIS
  Company Number: US-DialogSolutions-SAAVPROD-PI714372-C2

PATIENT

DRUGS (7)
  1. CLOFARABINE [Suspect]
     Active Substance: CLOFARABINE
     Indication: Acute leukaemia
     Dosage: 20 MG, QD
  2. CLOFARABINE [Suspect]
     Active Substance: CLOFARABINE
     Dosage: 30 MG, QD
  3. CLOFARABINE [Suspect]
     Active Substance: CLOFARABINE
     Dosage: 35 MG, QD
  4. CLOFARABINE [Suspect]
     Active Substance: CLOFARABINE
     Dosage: 40 MG, QD
  5. MITOXANTRONE [Concomitant]
     Active Substance: MITOXANTRONE HYDROCHLORIDE
     Indication: Acute leukaemia
     Dosage: 12 MG, QD, DAY 3-6
  6. DEXRAZOXANE [Concomitant]
     Active Substance: DEXRAZOXANE
     Indication: Acute leukaemia
  7. CYTARABINE [Concomitant]
     Active Substance: CYTARABINE
     Indication: Prophylaxis
     Route: 037

REACTIONS (1)
  - Myelosuppression [Unknown]
